FAERS Safety Report 5310946-8 (Version None)
Quarter: 2007Q2

REPORT INFORMATION
  Report Type: 
  Country: None (occurrence: None)
  Receive Date: 20070426
  Receipt Date: 20070426
  Transmission Date: 20071010
  Serious: Yes (Hospitalization)
  Sender: FDA-Public Use
  Company Number: None

PATIENT
  Sex: Female
  Weight: 68.0396 kg

DRUGS (1)
  1. ORTHO EVRA [Suspect]
     Indication: MENSTRUAL DISORDER
     Dosage: 1 PATCH 1-PATCH/WK TRANSDERMAL
     Route: 062
     Dates: start: 20061001, end: 20061101

REACTIONS (1)
  - DEEP VEIN THROMBOSIS [None]
